FAERS Safety Report 23932932 (Version 1)
Quarter: 2024Q2

REPORT INFORMATION
  Report Type: Spontaneous
  Country: ES (occurrence: ES)
  Receive Date: 20240603
  Receipt Date: 20240603
  Transmission Date: 20240716
  Serious: Yes (Death, Hospitalization)
  Sender: FDA-Public Use
  Company Number: ES-GILEAD-2024-0668355

PATIENT
  Sex: Male
  Weight: 104.5 kg

DRUGS (19)
  1. CARBOPLATIN [Suspect]
     Active Substance: CARBOPLATIN
     Indication: Non-small cell lung cancer metastatic
     Dosage: 580 MG?FORM OF ADMIN: INJECTION
     Route: 042
     Dates: start: 20240118, end: 20240321
  2. PACLITAXEL [Suspect]
     Active Substance: PACLITAXEL
     Indication: Non-small cell lung cancer metastatic
     Dosage: 400 MG, QD?FORM OF ADMIN: INJECTION
     Route: 042
     Dates: start: 20240118, end: 20240321
  3. DOMVANALIMAB [Suspect]
     Active Substance: DOMVANALIMAB
     Indication: Non-small cell lung cancer metastatic
     Dosage: 1200 MG?SOLUTION FOR INFUSION
     Route: 042
     Dates: start: 20240118, end: 20240118
  4. ZIMBERELIMAB [Suspect]
     Active Substance: ZIMBERELIMAB
     Indication: Non-small cell lung cancer metastatic
     Dosage: 360 MG?SOLUTION FOR INFUSION
     Route: 042
     Dates: start: 20240118, end: 20240321
  5. DEXAMETHASONE [Concomitant]
     Active Substance: DEXAMETHASONE
     Indication: Premedication
     Dosage: ROUTE: INTRAVENOUS
     Dates: start: 20240321, end: 20240321
  6. DEXCHLORPHENIRAMINE [Concomitant]
     Active Substance: DEXCHLORPHENIRAMINE
     Indication: Premedication
     Dosage: ROUTE: INTRAENOUS
     Dates: start: 20240321, end: 20240321
  7. FAMOTIDINE [Concomitant]
     Active Substance: FAMOTIDINE
     Indication: Premedication
     Dosage: ROUTE: ORAL
     Dates: start: 20240321, end: 20240321
  8. METOCLOPRAMIDE [Concomitant]
     Active Substance: METOCLOPRAMIDE
     Indication: Prophylaxis
     Dosage: ROUTE: ORAL
     Dates: start: 20240118
  9. MORPHINE [Concomitant]
     Active Substance: MORPHINE
     Indication: Premedication
     Dosage: ROUTE: ORAL
  10. RABEPRAZOLE SODIUM [Concomitant]
     Active Substance: RABEPRAZOLE SODIUM
     Indication: Premedication
     Dosage: ROUTE: ORAL
  11. CARVEDILOL [Concomitant]
     Active Substance: CARVEDILOL
     Indication: Premedication
     Dosage: ROUTE: ORAL
  12. ONDANSETRON [Concomitant]
     Active Substance: ONDANSETRON
     Indication: Prophylaxis
     Dosage: ROUTE: ORAL
     Dates: start: 20240118
  13. RIVAROXABAN [Concomitant]
     Active Substance: RIVAROXABAN
     Indication: Premedication
     Dosage: ROUTE: ORAL
  14. SILODOSIN [Concomitant]
     Active Substance: SILODOSIN
     Indication: Premedication
     Dosage: ROUTE: ORAL
  15. MORPHINE SULFATE [Concomitant]
     Active Substance: MORPHINE SULFATE
     Indication: Prophylaxis
     Dosage: ROUTE: ORAL
     Dates: start: 20231214
  16. ATORVASTATIN [Concomitant]
     Active Substance: ATORVASTATIN
     Indication: Premedication
     Dosage: ROUTE: ORAL
  17. NETUPITANT\PALONOSETRON [Concomitant]
     Active Substance: NETUPITANT\PALONOSETRON
     Indication: Premedication
     Dosage: ROUTE: ORAL
     Dates: start: 20240321, end: 20240321
  18. NYSTATIN [Concomitant]
     Active Substance: NYSTATIN
     Indication: Prophylaxis
     Dosage: ROUTE: ORAL
     Dates: start: 20240118
  19. AMLODIPINE AND VALSARTAN [Concomitant]
     Active Substance: AMLODIPINE\VALSARTAN
     Indication: Premedication
     Dosage: ROUTE: ORAL

REACTIONS (1)
  - Anaemia [Fatal]

NARRATIVE: CASE EVENT DATE: 20240402
